FAERS Safety Report 7108124-5 (Version None)
Quarter: 2010Q4

REPORT INFORMATION
  Report Type: 
  Country: None (occurrence: None)
  Receive Date: 20101110
  Receipt Date: 20101103
  Transmission Date: 20110411
  Serious: Yes (Hospitalization)
  Sender: FDA-Public Use
  Company Number: 2010SP058375

PATIENT
  Age: 62 Year
  Sex: Female

DRUGS (2)
  1. NASONEX [Suspect]
     Indication: SINUSITIS
     Dosage: 2 DF; HS; NAS
     Route: 045
     Dates: start: 20100501
  2. ATENOLOL [Concomitant]

REACTIONS (3)
  - FLATULENCE [None]
  - HIP FRACTURE [None]
  - OFF LABEL USE [None]
